FAERS Safety Report 10671651 (Version 2)
Quarter: 2015Q1

REPORT INFORMATION
  Report Type: Spontaneous
  Country: US (occurrence: US)
  Receive Date: 20141223
  Receipt Date: 20150130
  Transmission Date: 20150720
  Serious: No
  Sender: FDA-Public Use
  Company Number: US-TEVA-530919USA

PATIENT
  Sex: Male

DRUGS (1)
  1. ADASUVE [Suspect]
     Active Substance: LOXAPINE
     Route: 055

REACTIONS (4)
  - Accidental exposure to product [Recovered/Resolved]
  - Sedation [Recovered/Resolved]
  - Fatigue [Recovered/Resolved]
  - Dizziness [Recovered/Resolved]

NARRATIVE: CASE EVENT DATE: 20141125
